FAERS Safety Report 4673819-X (Version None)
Quarter: 2005Q2

REPORT INFORMATION
  Report Type: 
  Country: None (occurrence: None)
  Receive Date: 20050524
  Receipt Date: 20050510
  Transmission Date: 20051028
  Serious: Yes (Other)
  Sender: FDA-Public Use
  Company Number: GBS050517360

PATIENT
  Sex: Female

DRUGS (1)
  1. PROZAC [Suspect]
     Dates: start: 20050201

REACTIONS (2)
  - BLINDNESS TRANSIENT [None]
  - DIZZINESS [None]
